FAERS Safety Report 20212463 (Version 5)
Quarter: 2022Q1

REPORT INFORMATION
  Report Type: Report from Study
  Country: ZA (occurrence: ZA)
  Receive Date: 20211221
  Receipt Date: 20220228
  Transmission Date: 20220424
  Serious: Yes (Hospitalization)
  Sender: FDA-Public Use
  Company Number: ZA-NOVARTISPH-NVSC2021ZA287778

PATIENT
  Age: 35 Year
  Sex: Female

DRUGS (3)
  1. FINGOLIMOD HYDROCHLORIDE [Suspect]
     Active Substance: FINGOLIMOD HYDROCHLORIDE
     Indication: Multiple sclerosis
     Dosage: 0.5 MG, QD
     Route: 048
     Dates: start: 20180716
  2. FINGOLIMOD HYDROCHLORIDE [Suspect]
     Active Substance: FINGOLIMOD HYDROCHLORIDE
     Indication: Relapsing-remitting multiple sclerosis
     Dosage: 0.5 MG, QD
     Route: 048
     Dates: start: 20180726
  3. DALFAMPRIDINE [Concomitant]
     Active Substance: DALFAMPRIDINE
     Indication: Product used for unknown indication
     Dosage: UNK
     Route: 065

REACTIONS (19)
  - Stress [Recovering/Resolving]
  - Central nervous system lesion [Recovering/Resolving]
  - Infection [Recovering/Resolving]
  - Multiple sclerosis relapse [Recovering/Resolving]
  - Chills [Unknown]
  - Muscle spasticity [Unknown]
  - Pollakiuria [Unknown]
  - Burning feet syndrome [Unknown]
  - Peripheral swelling [Unknown]
  - Gastrointestinal disorder [Unknown]
  - Cold sweat [Unknown]
  - Pain [Unknown]
  - Intramyelinic oedema [Unknown]
  - Burning sensation [Unknown]
  - Tremor [Unknown]
  - Gait disturbance [Unknown]
  - Balance disorder [Unknown]
  - Headache [Unknown]
  - Drug ineffective [Unknown]

NARRATIVE: CASE EVENT DATE: 20220120
